FAERS Safety Report 8909218 (Version 2)
Quarter: 2012Q4

REPORT INFORMATION
  Report Type: Spontaneous
  Country: BR (occurrence: None)
  Receive Date: 20121107
  Receipt Date: 20121114
  Transmission Date: 20130627
  Serious: Yes (Other)
  Sender: FDA-Public Use
  Company Number: VAL_00962_2012

PATIENT
  Age: 42 Year
  Sex: Female
  Weight: 115 kg

DRUGS (1)
  1. METHERGINE [Suspect]
     Indication: HAEMORRHAGE
     Route: 048
     Dates: start: 20121026, end: 20121027

REACTIONS (7)
  - Self-medication [None]
  - Pain in extremity [None]
  - Diarrhoea [None]
  - Pain [None]
  - Drug effect decreased [None]
  - Fear [None]
  - Product quality issue [None]
